FAERS Safety Report 8216561-0 (Version None)
Quarter: 2012Q1

REPORT INFORMATION
  Report Type: 
  Country: None (occurrence: None)
  Receive Date: 20120314
  Receipt Date: 20120305
  Transmission Date: 20120608
  Serious: Yes (Other)
  Sender: FDA-Public Use
  Company Number: DKLU1076624

PATIENT
  Sex: Female

DRUGS (2)
  1. PREDNISOLONE [Suspect]
     Indication: PRECURSOR B-LYMPHOBLASTIC LYMPHOMA
     Dosage: ORAL
     Route: 048
  2. ELSPAR [Suspect]
     Indication: PRECURSOR B-LYMPHOBLASTIC LYMPHOMA
     Dosage: DURING INDUCTION

REACTIONS (4)
  - HYPERLIPIDAEMIA [None]
  - BLOOD TRIGLYCERIDES INCREASED [None]
  - BLOOD CHOLESTEROL INCREASED [None]
  - SINUS TACHYCARDIA [None]
